FAERS Safety Report 12015352 (Version 1)
Quarter: 2016Q1

REPORT INFORMATION
  Report Type: Spontaneous
  Country: US (occurrence: US)
  Receive Date: 20160205
  Receipt Date: 20160205
  Transmission Date: 20160526
  Serious: No
  Sender: FDA-Public Use
  Company Number: US-AMGEN-USASP2015033409

PATIENT

DRUGS (4)
  1. NAVELBINE [Concomitant]
     Active Substance: VINORELBINE TARTRATE
     Indication: BREAST CANCER
     Dosage: UNK UNK, EVERY 2 WEEKS
  2. NEULASTA [Suspect]
     Active Substance: PEGFILGRASTIM
     Indication: WHITE BLOOD CELL DISORDER
     Dosage: UNK, AFTER CHEMO
     Route: 065
  3. HERCEPTIN [Concomitant]
     Active Substance: TRASTUZUMAB
     Indication: BREAST CANCER
     Dosage: UNK UNK, Q3WK
  4. PERJETA [Concomitant]
     Active Substance: PERTUZUMAB
     Indication: BREAST CANCER
     Dosage: UNK UNK, EVERY 3 WEEKS

REACTIONS (10)
  - Restlessness [Unknown]
  - Fatigue [Unknown]
  - Bone pain [Unknown]
  - Decreased appetite [Unknown]
  - Asthenia [Unknown]
  - Irritability [Unknown]
  - Weight decreased [Unknown]
  - Insomnia [Unknown]
  - Weight increased [Unknown]
  - Alopecia [Unknown]
